FAERS Safety Report 7779416-1 (Version None)
Quarter: 2011Q3

REPORT INFORMATION
  Report Type: 
  Country: None (occurrence: None)
  Receive Date: 20110927
  Receipt Date: 20110916
  Transmission Date: 20111222
  Serious: No
  Sender: FDA-Public Use
  Company Number: US-BIOGENIDEC-2010BI045205

PATIENT
  Age: 32 Year
  Sex: Female

DRUGS (1)
  1. TYSABRI [Suspect]
     Indication: MULTIPLE SCLEROSIS
     Route: 042
     Dates: start: 20101202

REACTIONS (5)
  - EYE PAIN [None]
  - STAPHYLOCOCCAL SKIN INFECTION [None]
  - EYE INFECTION STAPHYLOCOCCAL [None]
  - STAPHYLOCOCCAL INFECTION [None]
  - CORNEAL ABRASION [None]
